FAERS Safety Report 24575365 (Version 1)
Quarter: 2024Q4

REPORT INFORMATION
  Report Type: Spontaneous
  Country: US (occurrence: None)
  Receive Date: 20241101
  Receipt Date: 20241101
  Transmission Date: 20250115
  Serious: Yes (Other)
  Sender: Public
  Company Number: None

PATIENT
  Age: 73 Year
  Sex: Male
  Weight: 77.11 kg

DRUGS (11)
  1. ESBRIET [Suspect]
     Active Substance: PIRFENIDONE
     Indication: Idiopathic pulmonary fibrosis
     Dosage: 3 TABS  MG TID ORAL ?
     Route: 048
     Dates: start: 20240715, end: 20241001
  2. LISINOPRIL [Concomitant]
     Active Substance: LISINOPRIL
  3. METHOCARBAMOL [Concomitant]
     Active Substance: METHOCARBAMOL
  4. TRAMADOL [Concomitant]
     Active Substance: TRAMADOL
  5. ATORVASTATIN [Concomitant]
     Active Substance: ATORVASTATIN
  6. TAMSULOSIN [Concomitant]
     Active Substance: TAMSULOSIN
  7. GABAPENTIN [Concomitant]
     Active Substance: GABAPENTIN
  8. CALCIUM 500MG [Concomitant]
  9. MULTIVITAMINS ADULT [Concomitant]
  10. VITAMIN B-121000MCG [Concomitant]
  11. VITAMIN C 500MG [Concomitant]

REACTIONS (2)
  - Feeling drunk [None]
  - Dizziness [None]

NARRATIVE: CASE EVENT DATE: 20241001
